FAERS Safety Report 23637336 (Version 1)
Quarter: 2024Q1

REPORT INFORMATION
  Report Type: Spontaneous
  Country: US (occurrence: US)
  Receive Date: 20240315
  Receipt Date: 20240315
  Transmission Date: 20240410
  Serious: No
  Sender: FDA-Public Use
  Company Number: US-AMGEN-USASP2024051259

PATIENT

DRUGS (2)
  1. MVASI [Suspect]
     Active Substance: BEVACIZUMAB-AWWB
     Indication: Hepatic cancer
     Dosage: 1092 MILLIGRAM (X3 100MG VIALS AND X2 400MG VIALS)
     Route: 065
  2. MVASI [Suspect]
     Active Substance: BEVACIZUMAB-AWWB
     Dosage: 1092 MILLIGRAM (X3 100MG VIALS AND X2 400MG VIALS)
     Route: 065

REACTIONS (2)
  - Off label use [Unknown]
  - Unevaluable event [Unknown]
